FAERS Safety Report 12779451 (Version 1)
Quarter: 2016Q3

REPORT INFORMATION
  Report Type: Spontaneous
  Country: US (occurrence: US)
  Receive Date: 20160922
  Receipt Date: 20160922
  Transmission Date: 20161109
  Serious: Yes (Life-Threatening)
  Sender: FDA-Public Use
  Company Number: None

PATIENT
  Age: 71 Year
  Sex: Male
  Weight: 95.5 kg

DRUGS (1)
  1. BACLOFEN. [Suspect]
     Active Substance: BACLOFEN
     Indication: ANGIOEDEMA
     Route: 048
     Dates: start: 20130517, end: 20130606

REACTIONS (11)
  - Facial pain [None]
  - Loss of consciousness [None]
  - Rash [None]
  - Pruritus [None]
  - Urticaria [None]
  - Tongue discomfort [None]
  - Paraesthesia oral [None]
  - Pharyngeal oedema [None]
  - Headache [None]
  - Swelling face [None]
  - Lip swelling [None]

NARRATIVE: CASE EVENT DATE: 20130517
